FAERS Safety Report 18322126 (Version 2)
Quarter: 2021Q2

REPORT INFORMATION
  Report Type: Spontaneous
  Country: JP (occurrence: JP)
  Receive Date: 20200928
  Receipt Date: 20210514
  Transmission Date: 20210717
  Serious: Yes (Death, Other)
  Sender: FDA-Public Use
  Company Number: JP-BAYER-2020-208017

PATIENT
  Age: 64 Year
  Sex: Female

DRUGS (5)
  1. MOISTURIZER [Concomitant]
     Active Substance: UNSPECIFIED INGREDIENT
     Indication: PROPHYLAXIS
     Dosage: UNK
     Dates: start: 20200728, end: 20201006
  2. OXYCODONE [Concomitant]
     Active Substance: OXYCODONE
     Indication: COLORECTAL CANCER
     Dosage: DAILY DOSE 20 MG
     Route: 048
     Dates: start: 20200818, end: 20201012
  3. ADALAT CC [Concomitant]
     Active Substance: NIFEDIPINE
     Dosage: DAILY DOSE 40 MG
     Route: 048
     Dates: end: 20200929
  4. STIVARGA [Suspect]
     Active Substance: REGORAFENIB
     Indication: COLORECTAL CANCER
     Dosage: 3 WEEKS CONSECUTIVE ADMINISTRATION 1 WEEK WITHDRAWAL DAILY DOSE 4 DF
     Route: 048
     Dates: start: 20200428, end: 20201006
  5. LUNESTA [Concomitant]
     Active Substance: ESZOPICLONE
     Dosage: DAILY DOSE 2 MG
     Route: 048
     Dates: start: 20200709, end: 20201014

REACTIONS (5)
  - Dyspnoea [None]
  - Colorectal cancer [Fatal]
  - Ascites [None]
  - Chest discomfort [None]
  - Malaise [None]
